FAERS Safety Report 24696893 (Version 1)
Quarter: 2024Q4

REPORT INFORMATION
  Report Type: Spontaneous
  Country: US (occurrence: US)
  Receive Date: 20241204
  Receipt Date: 20241204
  Transmission Date: 20250114
  Serious: Yes (Other)
  Sender: ELI LILLY AND COMPANY
  Company Number: US-ELI_LILLY_AND_COMPANY-US202411015932

PATIENT
  Sex: Male

DRUGS (2)
  1. DONANEMAB [Suspect]
     Active Substance: DONANEMAB
     Indication: Product used for unknown indication
     Dosage: UNK UNK, UNKNOWN
     Route: 065
  2. DONANEMAB [Suspect]
     Active Substance: DONANEMAB
     Dosage: UNK, UNKNOWN
     Route: 065
     Dates: start: 202411

REACTIONS (1)
  - Seizure [Unknown]
